FAERS Safety Report 5264903-0 (Version None)
Quarter: 2007Q1

REPORT INFORMATION
  Report Type: 
  Country: None (occurrence: None)
  Receive Date: 20061117
  Receipt Date: 20060724
  Transmission Date: 20070707
  Serious: Yes (Other)
  Sender: FDA-Public Use
  Company Number: US-JNJFOC-20060705053

PATIENT
  Age: 50 Year
  Sex: Female
  Weight: 54.4316 kg

DRUGS (2)
  1. LEVAQUIN [Suspect]
     Indication: SINUSITIS
     Dosage: 750 MG, 1 IN 1 DAY, ORAL
     Route: 048
     Dates: start: 20060720
  2. AVELOX [Suspect]
     Indication: SINUSITIS

REACTIONS (4)
  - ASTHENIA [None]
  - FEELING HOT [None]
  - ORTHOSTATIC HYPERTENSION [None]
  - PARAESTHESIA [None]
